FAERS Safety Report 25040953 (Version 1)
Quarter: 2025Q1

REPORT INFORMATION
  Report Type: Spontaneous
  Country: TR (occurrence: TR)
  Receive Date: 20250305
  Receipt Date: 20250305
  Transmission Date: 20250409
  Serious: Yes (Hospitalization)
  Sender: MYLAN
  Company Number: TR-MYLANLABS-2025M1018379

PATIENT
  Age: 58 Year
  Sex: Female

DRUGS (4)
  1. ATORVASTATIN [Suspect]
     Active Substance: ATORVASTATIN
     Indication: Porokeratosis
  2. ATORVASTATIN [Suspect]
     Active Substance: ATORVASTATIN
     Indication: Hidradenitis
  3. ACITRETIN [Suspect]
     Active Substance: ACITRETIN
     Indication: Porokeratosis
     Dosage: 35 MILLIGRAM, QD
  4. ACITRETIN [Suspect]
     Active Substance: ACITRETIN
     Indication: Hidradenitis

REACTIONS (2)
  - Drug ineffective for unapproved indication [Unknown]
  - Off label use [Unknown]
